FAERS Safety Report 24938333 (Version 1)
Quarter: 2025Q1

REPORT INFORMATION
  Report Type: Spontaneous
  Country: US (occurrence: US)
  Receive Date: 20250206
  Receipt Date: 20250206
  Transmission Date: 20250409
  Serious: No
  Sender: MYLAN
  Company Number: US-MYLANLABS-2025M1008100

PATIENT
  Sex: Female
  Weight: 80.29 kg

DRUGS (1)
  1. INSPRA [Suspect]
     Active Substance: EPLERENONE
     Indication: Hypertension
     Dosage: 50 MILLIGRAM, BID (1 TABLET TWICE A DAY)
     Route: 065

REACTIONS (7)
  - Paraesthesia oral [Unknown]
  - Wheezing [Unknown]
  - Myalgia [Unknown]
  - Arthralgia [Unknown]
  - Lip pain [Unknown]
  - Glossodynia [Unknown]
  - Product substitution issue [Unknown]
